FAERS Safety Report 5046493-0 (Version None)
Quarter: 2006Q3

REPORT INFORMATION
  Report Type: 
  Country: None (occurrence: None)
  Receive Date: 20060707
  Receipt Date: 20060707
  Transmission Date: 20061208
  Serious: Yes (Hospitalization)
  Sender: FDA-Public Use
  Company Number: None

PATIENT
  Age: 60 Year
  Sex: Male

DRUGS (15)
  1. HYDROCHLOROTHIAZIDE [Suspect]
     Indication: HYPERTENSION
     Dosage: 25MG  QD  PO
     Route: 048
     Dates: start: 20060103, end: 20060331
  2. ALBUTEROL SPIROS [Concomitant]
  3. AZITHROMYCIN [Concomitant]
  4. IRON SULFATETHIAMIN COMPOUND TAB [Concomitant]
  5. FLUNISOLIDE [Concomitant]
  6. GUAIFENESIN [Concomitant]
  7. LORATADINE [Concomitant]
  8. MONTELUKAST [Concomitant]
  9. NAPROXEN [Concomitant]
  10. OMEPRAZOLE [Concomitant]
  11. SEROQUEL [Concomitant]
  12. TERAZOSIN HCL [Concomitant]
  13. TRAMADOL HCL [Concomitant]
  14. TRAZODONE HCL [Concomitant]
  15. VALSARTAN [Concomitant]

REACTIONS (3)
  - HAEMATOCRIT DECREASED [None]
  - MELAENA [None]
  - SYNCOPE [None]
